FAERS Safety Report 8543213-X (Version None)
Quarter: 2012Q3

REPORT INFORMATION
  Report Type: 
  Country: None (occurrence: None)
  Receive Date: 20120727
  Receipt Date: 20120717
  Transmission Date: 20120928
  Serious: Yes (Other)
  Sender: FDA-Public Use
  Company Number: AU-JNJFOC-20120110744

PATIENT
  Sex: Female

DRUGS (3)
  1. STELARA [Suspect]
     Route: 058
     Dates: start: 20120317, end: 20120317
  2. STELARA [Suspect]
     Indication: PSORIASIS
     Route: 058
     Dates: start: 20111227, end: 20111227
  3. STELARA [Suspect]
     Route: 058
     Dates: start: 20111129, end: 20111129

REACTIONS (2)
  - HEPATIC ENZYME INCREASED [None]
  - TOOTH ABSCESS [None]
